FAERS Safety Report 5579414-2 (Version None)
Quarter: 2008Q1

REPORT INFORMATION
  Report Type: 
  Country: None (occurrence: None)
  Receive Date: 20080102
  Receipt Date: 20071225
  Transmission Date: 20080703
  Serious: Yes (Hospitalization, Other)
  Sender: FDA-Public Use
  Company Number: JP-ASTRAZENECA-2007AP08069

PATIENT
  Age: 1068 Month
  Sex: Male

DRUGS (2)
  1. ZOLADEX [Suspect]
     Indication: PROSTATE CANCER
     Route: 058
     Dates: start: 20000101, end: 20030630
  2. CASODEX [Suspect]
     Indication: PROSTATE CANCER
     Route: 048
     Dates: start: 20000101, end: 20030630

REACTIONS (2)
  - BREAST CANCER MALE [None]
  - BREAST SWELLING [None]
